FAERS Safety Report 20278775 (Version 1)
Quarter: 2022Q1

REPORT INFORMATION
  Report Type: Spontaneous
  Country: US (occurrence: US)
  Receive Date: 20220103
  Receipt Date: 20220103
  Transmission Date: 20220423
  Serious: No
  Sender: FDA-Public Use
  Company Number: US-TEVA-2021-US-1989352

PATIENT
  Sex: Female

DRUGS (2)
  1. VIGABATRIN [Suspect]
     Active Substance: VIGABATRIN
     Indication: Partial seizures
     Dosage: TAKE ONE-HALF TABLET (0.5TAB) BY MOUTH 2 TIMES DAILY
     Route: 048
  2. VIGABATRIN [Suspect]
     Active Substance: VIGABATRIN
     Indication: Focal dyscognitive seizures

REACTIONS (1)
  - Drug ineffective [Unknown]
